FAERS Safety Report 6816999-X (Version None)
Quarter: 2010Q3

REPORT INFORMATION
  Report Type: 
  Country: None (occurrence: None)
  Receive Date: 20100706
  Receipt Date: 20100625
  Transmission Date: 20110219
  Serious: Yes (Other)
  Sender: FDA-Public Use
  Company Number: PHHY2010US34118

PATIENT
  Sex: Female
  Weight: 64.853 kg

DRUGS (4)
  1. EXTAVIA [Suspect]
     Indication: MULTIPLE SCLEROSIS
     Dosage: 0.25 MG, QOD
     Route: 058
     Dates: start: 20100211
  2. GABAPENTIN [Concomitant]
     Indication: PAIN
     Route: 048
  3. TEMAZEPAM [Concomitant]
     Indication: INSOMNIA
     Dosage: UNK
     Route: 048
  4. DEPAKOTE [Concomitant]
     Indication: MIGRAINE
     Dosage: UNK
     Route: 048

REACTIONS (6)
  - ABDOMINAL PAIN [None]
  - CROHN'S DISEASE [None]
  - GASTROINTESTINAL HAEMORRHAGE [None]
  - MEGACOLON [None]
  - RECTAL HAEMORRHAGE [None]
  - VOMITING [None]
